FAERS Safety Report 6936322-X (Version None)
Quarter: 2010Q3

REPORT INFORMATION
  Report Type: 
  Country: None (occurrence: None)
  Receive Date: 20100823
  Receipt Date: 20100811
  Transmission Date: 20110219
  Serious: Yes (Hospitalization, Other)
  Sender: FDA-Public Use
  Company Number: JP-PFIZER INC-2010082255

PATIENT
  Age: 63 Year
  Sex: Male

DRUGS (6)
  1. AMLODIPINE BESYLATE [Suspect]
     Indication: HYPERTENSION
     Dosage: 10 MG, 1X/DAY
     Route: 048
     Dates: start: 20070205, end: 20090623
  2. AMLODIPINE BESYLATE [Suspect]
     Dosage: 7.5 MG, 1X/DAY
     Route: 048
     Dates: start: 20090623, end: 20100618
  3. VALSARTAN [Suspect]
     Indication: HYPERTENSION
     Dosage: 40 MG, 1X/DAY
     Route: 048
     Dates: start: 20071023, end: 20100621
  4. FRANDOL [Concomitant]
     Indication: ANGINA PECTORIS
     Dosage: 40 MG, 1X/DAY
     Route: 048
     Dates: start: 20050701
  5. SIGMART [Concomitant]
     Indication: ANGINA PECTORIS
     Dosage: 10 MG, 1X/DAY
     Route: 048
     Dates: start: 20060701
  6. MUCOSTA [Concomitant]
     Indication: GASTRITIS
     Dosage: 300 MG, 1X/DAY
     Route: 048
     Dates: start: 20090623

REACTIONS (1)
  - RHABDOMYOLYSIS [None]
